FAERS Safety Report 7353620-9 (Version None)
Quarter: 2011Q1

REPORT INFORMATION
  Report Type: 
  Country: None (occurrence: None)
  Receive Date: 20110315
  Receipt Date: 20110307
  Transmission Date: 20110831
  Serious: Yes (Death, Hospitalization)
  Sender: FDA-Public Use
  Company Number: NL-CELGENEUS-114-21880-11022219

PATIENT
  Sex: Male

DRUGS (1)
  1. REVLIMID [Suspect]
     Route: 048

REACTIONS (4)
  - THROMBOCYTOPENIA [None]
  - STAPHYLOCOCCAL SEPSIS [None]
  - MULTI-ORGAN FAILURE [None]
  - NEUTROPENIA [None]
